FAERS Safety Report 6694136-2 (Version None)
Quarter: 2010Q2

REPORT INFORMATION
  Report Type: 
  Country: None (occurrence: None)
  Receive Date: 20100423
  Receipt Date: 20090514
  Transmission Date: 20101027
  Serious: No
  Sender: FDA-Public Use
  Company Number: A0785559A

PATIENT
  Age: 3 Year
  Sex: Male

DRUGS (1)
  1. FLOVENT [Suspect]
     Route: 055

REACTIONS (1)
  - MEDICATION ERROR [None]
